FAERS Safety Report 6384924-4 (Version None)
Quarter: 2009Q4

REPORT INFORMATION
  Report Type: 
  Country: None (occurrence: None)
  Receive Date: 20091002
  Receipt Date: 20090618
  Transmission Date: 20100525
  Serious: No
  Sender: FDA-Public Use
  Company Number: A0792273A

PATIENT
  Age: 65 Year
  Sex: Female

DRUGS (8)
  1. REQUIP XL [Suspect]
     Indication: PARKINSON'S DISEASE
     Dosage: 8MG TWICE PER DAY
     Route: 048
     Dates: start: 20081201
  2. RED YEAST RICE [Concomitant]
  3. DICLOFENAC SODIUM [Concomitant]
  4. CALTRATE + D [Concomitant]
  5. SALMON OIL [Concomitant]
  6. GLUCOSAMINE/CHONDROITIN [Concomitant]
  7. CENTRUM SILVER [Concomitant]
  8. TRIHEXYPHENIDYL HCL [Concomitant]

REACTIONS (3)
  - ALOPECIA [None]
  - DRY MOUTH [None]
  - NAUSEA [None]
